FAERS Safety Report 6028975-8 (Version None)
Quarter: 2009Q1

REPORT INFORMATION
  Report Type: 
  Country: None (occurrence: None)
  Receive Date: 20090106
  Receipt Date: 20081231
  Transmission Date: 20090719
  Serious: Yes (Other)
  Sender: FDA-Public Use
  Company Number: PHHY2008TW33144

PATIENT
  Sex: Female
  Weight: 60 kg

DRUGS (6)
  1. ZOMETA [Suspect]
     Indication: BREAST CANCER
     Dosage: 4 MG, UNK
     Route: 042
     Dates: start: 20070103, end: 20081016
  2. ZOMETA [Suspect]
     Indication: METASTASES TO BONE
  3. XELODA [Concomitant]
     Indication: METASTASES TO BONE
     Dosage: UNK
     Dates: start: 20070314
  4. AREDIA [Concomitant]
     Dosage: UNK
     Dates: start: 20050215, end: 20061206
  5. DEXAMETHASONE [Concomitant]
     Dosage: UNK
     Dates: start: 20081016, end: 20081029
  6. GEMZAR [Concomitant]
     Dosage: UNK
     Dates: start: 20081023, end: 20081023

REACTIONS (3)
  - ABASIA [None]
  - ARTHRALGIA [None]
  - STRESS FRACTURE [None]
